FAERS Safety Report 8897216 (Version 1)
Quarter: 2012Q4

REPORT INFORMATION
  Report Type: 
  Country: US (occurrence: US)
  Receive Date: 20121108
  Receipt Date: 20121108
  Transmission Date: 20130627
  Serious: No
  Sender: FDA-Public Use
  Company Number: US-AMGEN-USASP2012012104

PATIENT
  Age: 60 Year
  Sex: Female
  Weight: 79.37 kg

DRUGS (2)
  1. ENBREL [Suspect]
     Indication: PSORIASIS
     Dosage: 50 mg, 2 times/wk
     Dates: start: 20070725, end: 20111231
  2. STELARA [Concomitant]

REACTIONS (1)
  - Drug ineffective [Unknown]
